FAERS Safety Report 6082545-4 (Version None)
Quarter: 2009Q1

REPORT INFORMATION
  Report Type: 
  Country: None (occurrence: None)
  Receive Date: 20090218
  Receipt Date: 20090206
  Transmission Date: 20090719
  Serious: Yes (Other)
  Sender: FDA-Public Use
  Company Number: GB-JNJFOC-20090202069

PATIENT
  Age: 64 Year
  Sex: Male
  Weight: 94 kg

DRUGS (13)
  1. REMICADE [Suspect]
     Indication: DRUG USE FOR UNKNOWN INDICATION
     Route: 042
  2. METHOTREXATE [Concomitant]
  3. PREDNISOLONE [Concomitant]
  4. ATENOLOL [Concomitant]
  5. CLOPIDROGEL [Concomitant]
  6. FOLIC ACID [Concomitant]
  7. MYCOPHENOLATE MOFETIL [Concomitant]
  8. OMEPRAZOLE [Concomitant]
  9. PARACETAMOL [Concomitant]
  10. PRAVASTATIN [Concomitant]
  11. RISEDRONATE SODIUM [Concomitant]
  12. SULFASALAZINE [Concomitant]
  13. TRAMADOL HCL [Concomitant]

REACTIONS (1)
  - NASAL NEOPLASM BENIGN [None]
